FAERS Safety Report 8503543-4 (Version None)
Quarter: 2012Q3

REPORT INFORMATION
  Report Type: 
  Country: None (occurrence: None)
  Receive Date: 20120711
  Receipt Date: 20120702
  Transmission Date: 20120928
  Serious: No
  Sender: FDA-Public Use
  Company Number: US-PFIZER INC-2012158829

PATIENT
  Sex: Female
  Weight: 77.098 kg

DRUGS (11)
  1. MELOXICAM [Concomitant]
     Indication: SPONDYLITIS
  2. EFFEXOR XR [Suspect]
     Dosage: 37.5 MG, DAILY
     Route: 048
     Dates: start: 20110901, end: 20110901
  3. EFFEXOR XR [Suspect]
     Dosage: 37.5 MG, 3X/DAY
     Route: 048
     Dates: start: 20110901
  4. MELOXICAM [Concomitant]
     Indication: ARTHRITIS
     Dosage: UNK, AS NEEDED
  5. EFFEXOR XR [Suspect]
     Indication: DEPRESSION
     Dosage: 37.5 MG, 3X/DAY
     Route: 048
     Dates: start: 20091101, end: 20110904
  6. IBUPROFEN (ADVIL) [Suspect]
     Indication: PAIN
     Dosage: 200 MG, 2X/DAY
  7. MELOXICAM [Concomitant]
  8. CLONAZEPAM [Concomitant]
     Indication: ANXIETY
     Dosage: UNK, DAILY
  9. EFFEXOR XR [Suspect]
     Indication: ANXIETY
     Dosage: 37.5 MG, 2X/DAY
     Route: 048
     Dates: start: 20110905, end: 20110901
  10. IBUPROFEN (ADVIL) [Suspect]
     Indication: HEADACHE
  11. PROZAC [Suspect]
     Dosage: UNK
     Dates: start: 20110101

REACTIONS (16)
  - MUSCLE TWITCHING [None]
  - COUGH [None]
  - MALAISE [None]
  - CHEST DISCOMFORT [None]
  - MUSCLE SPASMS [None]
  - ERUCTATION [None]
  - WITHDRAWAL SYNDROME [None]
  - HEADACHE [None]
  - CONSTIPATION [None]
  - DIZZINESS [None]
  - LIMB DISCOMFORT [None]
  - PAIN [None]
  - IMPAIRED WORK ABILITY [None]
  - DRUG INEFFECTIVE [None]
  - IMPAIRED DRIVING ABILITY [None]
  - DISTURBANCE IN ATTENTION [None]
